FAERS Safety Report 8065284-X (Version None)
Quarter: 2011Q4

REPORT INFORMATION
  Report Type: 
  Country: None (occurrence: None)
  Receive Date: 20111221
  Receipt Date: 20110622
  Transmission Date: 20120403
  Serious: Yes (Hospitalization)
  Sender: FDA-Public Use
  Company Number: PHHY2011US37410

PATIENT
  Age: 32 Year
  Sex: Female

DRUGS (1)
  1. EXJADE [Suspect]
     Dosage: 2000 MG, DAILY, ORAL
     Route: 048

REACTIONS (3)
  - PEPTIC ULCER [None]
  - ABDOMINAL DISCOMFORT [None]
  - DIARRHOEA [None]
